FAERS Safety Report 17148651 (Version 1)
Quarter: 2019Q4

REPORT INFORMATION
  Report Type: Spontaneous
  Country: US (occurrence: US)
  Receive Date: 20191213
  Receipt Date: 20191213
  Transmission Date: 20200122
  Serious: Yes (Other)
  Sender: FDA-Public Use
  Company Number: US-SA-2019SA341222

PATIENT
  Age: 47 Year
  Sex: Male
  Weight: 72 kg

DRUGS (19)
  1. METOPROLOL SUCCINATE. [Concomitant]
     Active Substance: METOPROLOL SUCCINATE
     Dosage: 1 DF, QD
     Route: 048
     Dates: start: 20190215
  2. SULFAMETHOXAZOLE AND TRIMETHOPRIM [Concomitant]
     Active Substance: SULFAMETHOXAZOLE\TRIMETHOPRIM
     Dosage: 1 DF, QD
     Route: 048
     Dates: start: 20190215
  3. DIPHENHYDRAMINE. [Concomitant]
     Active Substance: DIPHENHYDRAMINE
     Indication: ANAPHYLACTIC REACTION
     Dosage: 25 MG, PRN
     Route: 048
     Dates: start: 20190226
  4. EPINEPHRINE. [Concomitant]
     Active Substance: EPINEPHRINE
     Indication: ANAPHYLACTIC REACTION
     Dosage: 0.3 MG, PRN
     Route: 030
     Dates: start: 20190226
  5. PREDNISONE. [Concomitant]
     Active Substance: PREDNISONE
     Dosage: 1 DF, QD
     Route: 048
     Dates: start: 20190215
  6. EZETIMIBE. [Concomitant]
     Active Substance: EZETIMIBE
     Dosage: 1 DF, QD
     Route: 048
     Dates: start: 20190215
  7. NOVOLOG [Concomitant]
     Active Substance: INSULIN ASPART
     Dosage: 100 ML, QD CARTRIDGE
     Route: 058
     Dates: start: 20190215
  8. WARFARIN SODIUM. [Concomitant]
     Active Substance: WARFARIN SODIUM
     Dosage: 1 DF, QD
     Route: 048
     Dates: start: 20190215
  9. ASPIRIN 81 [Concomitant]
     Active Substance: ASPIRIN
     Dosage: 1 DF, QD
     Route: 048
     Dates: start: 20190215
  10. PAXIL [PIROXICAM] [Concomitant]
     Active Substance: PIROXICAM
     Dosage: 1 DF, QD
     Route: 048
     Dates: start: 20190215
  11. ABX [Concomitant]
     Dosage: UNK UNK, UNK
     Route: 042
  12. HEPARIN [Concomitant]
     Active Substance: HEPARIN SODIUM
     Dosage: 100 UN.ML AS DIRECTED
     Route: 042
     Dates: start: 20190226
  13. NORMAL SALINE [Concomitant]
     Active Substance: SODIUM CHLORIDE
     Dosage: 0.9% IV AS DIRECTED
     Route: 042
     Dates: start: 20190226
  14. FABRAZYME [Suspect]
     Active Substance: AGALSIDASE BETA
     Indication: LIPIDOSIS
     Dosage: 75 MG, QOW (5MG VIAL - 35MG VIAL)
     Route: 042
     Dates: start: 20190219
  15. TACROLIMUS. [Concomitant]
     Active Substance: TACROLIMUS
     Dosage: 1 DF, BID
     Route: 048
     Dates: start: 20190215
  16. SODIUM CHLORIDE 0.9% [Concomitant]
     Active Substance: SODIUM CHLORIDE
     Dosage: 0.9% IV AS DIRECTED
     Route: 042
     Dates: start: 20190226
  17. STERILE WATER [Concomitant]
     Active Substance: WATER
     Dosage: 1 DF AS DIRECTED
     Route: 042
     Dates: start: 20190226
  18. LYRICA [Concomitant]
     Active Substance: PREGABALIN
     Dosage: 1 DF, QD
     Route: 048
     Dates: start: 20190215
  19. MYCOPHENOLATE MOFETIL. [Concomitant]
     Active Substance: MYCOPHENOLATE MOFETIL
     Dosage: 2 DF, QD
     Route: 048
     Dates: start: 20190215

REACTIONS (2)
  - Osteomyelitis [Unknown]
  - Product use in unapproved indication [Unknown]
